FAERS Safety Report 8961288 (Version 1)
Quarter: 2012Q4

REPORT INFORMATION
  Report Type: 
  Country: US (occurrence: US)
  Receive Date: 20121212
  Receipt Date: 20121212
  Transmission Date: 20130627
  Serious: No
  Sender: FDA-Public Use
  Company Number: US-BAYER-2012-130230

PATIENT
  Sex: Female

DRUGS (1)
  1. CLIMARA [Suspect]
     Dosage: UNK
     Route: 062

REACTIONS (1)
  - Product adhesion issue [None]
